FAERS Safety Report 4717764-X (Version None)
Quarter: 2005Q3

REPORT INFORMATION
  Report Type: 
  Country: None (occurrence: None)
  Receive Date: 20050715
  Receipt Date: 20050510
  Transmission Date: 20060218
  Serious: Yes (Hospitalization)
  Sender: FDA-Public Use
  Company Number: 2005-01028

PATIENT
  Age: 87 Year
  Sex: Male
  Weight: 97 kg

DRUGS (5)
  1. INTEGRILIN [Suspect]
     Indication: CORONARY ANGIOPLASTY
     Dosage: 180.00 UG/KG X2, IV BOLUS
     Route: 040
     Dates: start: 20050509, end: 20050510
  2. INTEGRILIN [Suspect]
     Indication: CORONARY ANGIOPLASTY
     Dosage: 180.00 UG/KG X2, IV BOLUS
     Route: 040
     Dates: start: 20050509
  3. PLAVIX [Concomitant]
  4. ASPIRIN [Concomitant]
  5. HEPARIN [Concomitant]

REACTIONS (2)
  - MELAENA [None]
  - RENAL IMPAIRMENT [None]
